FAERS Safety Report 8119294-4 (Version None)
Quarter: 2012Q1

REPORT INFORMATION
  Report Type: 
  Country: None (occurrence: None)
  Receive Date: 20120207
  Receipt Date: 20120127
  Transmission Date: 20120608
  Serious: No
  Sender: FDA-Public Use
  Company Number: US-ELI_LILLY_AND_COMPANY-US201201009428

PATIENT
  Age: 58 Year
  Sex: Female

DRUGS (1)
  1. CYMBALTA [Suspect]
     Indication: FIBROMYALGIA
     Dosage: 30 MG, QD

REACTIONS (5)
  - ANXIETY [None]
  - HEPATIC STEATOSIS [None]
  - BURNING SENSATION [None]
  - PANIC ATTACK [None]
  - FEELING ABNORMAL [None]
